FAERS Safety Report 4466342-9 (Version None)
Quarter: 2004Q4

REPORT INFORMATION
  Report Type: 
  Country: None (occurrence: None)
  Receive Date: 20041005
  Receipt Date: 20040927
  Transmission Date: 20050328
  Serious: Yes (Life-Threatening)
  Sender: FDA-Public Use
  Company Number: JP-GLAXOSMITHKLINE-B0346599A

PATIENT
  Age: 3 Year
  Sex: Female

DRUGS (1)
  1. ALKERAN [Suspect]
     Indication: NEUROBLASTOMA
     Route: 042

REACTIONS (4)
  - LIVER DISORDER [None]
  - RENAL FAILURE [None]
  - RESPIRATORY FAILURE [None]
  - SEPSIS [None]
